FAERS Safety Report 13666829 (Version 1)
Quarter: 2017Q2

REPORT INFORMATION
  Report Type: Spontaneous
  Country: US (occurrence: US)
  Receive Date: 20170619
  Receipt Date: 20170619
  Transmission Date: 20170830
  Serious: No
  Sender: FDA-Public Use
  Company Number: US-ROCHE-1330989

PATIENT
  Sex: Female

DRUGS (8)
  1. ASPIRIN. [Concomitant]
     Active Substance: ASPIRIN
  2. HYDROCHLOROTHIAZIDE. [Concomitant]
     Active Substance: HYDROCHLOROTHIAZIDE
  3. CRANBERRY. [Concomitant]
     Active Substance: CRANBERRY
  4. ISONIAZID. [Concomitant]
     Active Substance: ISONIAZID
  5. AMOXICILLIN. [Concomitant]
     Active Substance: AMOXICILLIN
  6. XELODA [Suspect]
     Active Substance: CAPECITABINE
     Indication: BREAST CANCER
     Dosage: 7 DAYS ON AND 7 DAYS OFF
     Route: 048
     Dates: start: 20131122
  7. GABAPENTIN. [Concomitant]
     Active Substance: GABAPENTIN
  8. SIMVASTATIN. [Concomitant]
     Active Substance: SIMVASTATIN

REACTIONS (2)
  - Nausea [Unknown]
  - Diarrhoea [Unknown]
